FAERS Safety Report 26199111 (Version 1)
Quarter: 2025Q4

REPORT INFORMATION
  Report Type: Spontaneous
  Country: CN (occurrence: CN)
  Receive Date: 20251225
  Receipt Date: 20251225
  Transmission Date: 20260118
  Serious: Yes (Other)
  Sender: SHENZHEN TECHDOW PHARMACEUTICAL
  Company Number: CN-adr44030518216-HPR2025000887

PATIENT
  Age: 72 Year
  Sex: Female

DRUGS (3)
  1. ENOXAPARIN SODIUM [Suspect]
     Active Substance: ENOXAPARIN SODIUM
     Indication: Arteriosclerosis coronary artery
     Dosage: 4000IU,BID
     Dates: start: 20251209, end: 20251212
  2. INDOBUFEN [Suspect]
     Active Substance: INDOBUFEN
     Indication: Arteriosclerosis coronary artery
     Dosage: 0.1G,BID
     Dates: start: 20251209, end: 20251212
  3. CLOPIDOGREL BISULFATE [Suspect]
     Active Substance: CLOPIDOGREL BISULFATE
     Indication: Arteriosclerosis coronary artery
     Dosage: 75MG,QD
     Dates: start: 20251209, end: 20251212

REACTIONS (1)
  - Full blood count decreased [Unknown]

NARRATIVE: CASE EVENT DATE: 20251212
